FAERS Safety Report 9687958 (Version 2)
Quarter: 2013Q4

REPORT INFORMATION
  Report Type: Report from Study
  Country: AR (occurrence: AR)
  Receive Date: 20131114
  Receipt Date: 20131114
  Transmission Date: 20140711
  Serious: Yes (Other)
  Sender: FDA-Public Use
  Company Number: PHHY2013AR100758

PATIENT
  Age: 60 Year
  Sex: Female

DRUGS (3)
  1. GILENYA [Suspect]
     Indication: MULTIPLE SCLEROSIS
     Dosage: 1 DF, QD
     Route: 048
     Dates: start: 20130717
  2. ALPLAX [Concomitant]
  3. ANTIDEPRESSANTS [Concomitant]

REACTIONS (3)
  - Blood pressure fluctuation [Unknown]
  - Feeling of despair [Unknown]
  - Nervousness [Unknown]
